FAERS Safety Report 5877291-3 (Version None)
Quarter: 2008Q3

REPORT INFORMATION
  Report Type: 
  Country: None (occurrence: None)
  Receive Date: 20080903
  Receipt Date: 20080818
  Transmission Date: 20090109
  Serious: Yes (Hospitalization)
  Sender: FDA-Public Use
  Company Number: LIT-007-08-GB

PATIENT
  Age: 7 Year
  Sex: Female

DRUGS (5)
  1. HUMAN NORMAL IMMUNOGLOBULIN FOR INTRVENOUS ADMINISTRATION [Suspect]
     Indication: EVANS SYNDROME
     Route: 042
  2. CYCLOSPORINE [Suspect]
     Indication: EVANS SYNDROME
  3. MYCOPHENOLATE MOFETIL (MYCOPHENOLIC ACID) [Suspect]
     Indication: EVANS SYNDROME
  4. PREDNISONE [Suspect]
     Indication: EVANS SYNDROME
  5. RITUXIMAB (RITUXIMAB) [Suspect]
     Indication: EVANS SYNDROME
     Route: 042

REACTIONS (7)
  - COMPLICATIONS OF BONE MARROW TRANSPLANT [None]
  - IMMUNOSUPPRESSION [None]
  - LYMPHOPROLIFERATIVE DISORDER [None]
  - PULMONARY ARTERIAL HYPERTENSION [None]
  - SPLENECTOMY [None]
  - TRICUSPID VALVE INCOMPETENCE [None]
  - VASCULITIS [None]
